FAERS Safety Report 10241689 (Version 1)
Quarter: 2014Q2

REPORT INFORMATION
  Report Type: Spontaneous
  Country: US (occurrence: None)
  Receive Date: 20140613
  Receipt Date: 20140613
  Transmission Date: 20141212
  Serious: Yes (Hospitalization)
  Sender: FDA-Public Use
  Company Number: UNT-2014-001655

PATIENT
  Age: 52 Year
  Sex: Female
  Weight: 81.6 kg

DRUGS (1)
  1. REMODULIN (TREPROSTINIL SODIUM) INJECTION, 10MG/ML [Suspect]
     Indication: COR PULMONALE CHRONIC
     Route: 041
     Dates: start: 20090128

REACTIONS (2)
  - Loss of consciousness [None]
  - Blood glucose decreased [None]
